FAERS Safety Report 14608046 (Version 1)
Quarter: 2018Q1

REPORT INFORMATION
  Report Type: Spontaneous
  Country: DE (occurrence: DE)
  Receive Date: 20180307
  Receipt Date: 20180307
  Transmission Date: 20180509
  Serious: Yes (Hospitalization)
  Sender: FDA-Public Use
  Company Number: DE-PFIZER INC-2017133721

PATIENT
  Age: 86 Year
  Sex: Male
  Weight: 80 kg

DRUGS (1)
  1. TAZOBAC [Suspect]
     Active Substance: PIPERACILLIN SODIUM\TAZOBACTAM SODIUM
     Indication: PNEUMONIA
     Dosage: UNK
     Route: 042
     Dates: start: 20170309, end: 20170313

REACTIONS (2)
  - Thrombocytopenia [Recovering/Resolving]
  - Melaena [Unknown]

NARRATIVE: CASE EVENT DATE: 2017
